FAERS Safety Report 8586580-3 (Version None)
Quarter: 2012Q3

REPORT INFORMATION
  Report Type: 
  Country: None (occurrence: None)
  Receive Date: 20120810
  Receipt Date: 20120807
  Transmission Date: 20120928
  Serious: Yes (Death, Other)
  Sender: FDA-Public Use
  Company Number: US-BAYER-2012-081024

PATIENT
  Age: 4 Year
  Sex: Female

DRUGS (7)
  1. ASPIRIN [Suspect]
     Indication: PLATELET AGGREGATION INHIBITION
     Dosage: UNK
     Dates: start: 20101201, end: 20110201
  2. DOPAMINE HCL [Concomitant]
     Indication: HYPOTENSION
     Route: 041
  3. HEPARIN [Concomitant]
     Route: 041
  4. ENOXAPARIN [Concomitant]
     Dosage: UNK
     Dates: start: 20101201
  5. TRIMETHOPRIM + SULFAMETHOXAZOLE [Suspect]
     Indication: PROPHYLAXIS
  6. DIPYRIDAMOLE [Concomitant]
     Indication: PLATELET AGGREGATION INHIBITION
     Dosage: UNK
     Dates: start: 20101001, end: 20110201
  7. CLOPIDOGREL [Concomitant]
     Indication: PLATELET AGGREGATION INHIBITION

REACTIONS (7)
  - MULTI-ORGAN FAILURE [None]
  - SEPSIS [None]
  - DRUG RESISTANCE [None]
  - EPISTAXIS [None]
  - THROMBOSIS IN DEVICE [None]
  - RENAL FAILURE [None]
  - DEVICE RELATED INFECTION [None]
